FAERS Safety Report 6046943-7 (Version None)
Quarter: 2009Q1

REPORT INFORMATION
  Report Type: 
  Country: None (occurrence: None)
  Receive Date: 20090122
  Receipt Date: 20090120
  Transmission Date: 20090719
  Serious: Yes (Death)
  Sender: FDA-Public Use
  Company Number: FR-JNJFOC-20090104536

PATIENT
  Age: 82 Year
  Sex: Male

DRUGS (6)
  1. LEVOFLOXACIN [Suspect]
     Indication: LUNG INFECTION
     Route: 048
  2. CORDARONE [Concomitant]
     Route: 065
  3. SECTRAL [Concomitant]
     Route: 065
  4. CORVASAL [Concomitant]
     Route: 065
  5. ZOCOR [Concomitant]
     Route: 065
  6. PREVISCAN [Concomitant]
     Route: 065

REACTIONS (1)
  - SUDDEN DEATH [None]
